FAERS Safety Report 11476360 (Version 1)
Quarter: 2015Q3

REPORT INFORMATION
  Report Type: Spontaneous
  Country: US (occurrence: US)
  Receive Date: 20150909
  Receipt Date: 20150909
  Transmission Date: 20151125
  Serious: No
  Sender: FDA-Public Use
  Company Number: US-JAZZ-2014-US-009750

PATIENT
  Age: 35 Year
  Sex: Female

DRUGS (1)
  1. XYREM [Suspect]
     Active Substance: SODIUM OXYBATE
     Indication: PRODUCT USED FOR UNKNOWN INDICATION
     Dosage: UNKNOWN DOSE
     Route: 048
     Dates: start: 201404, end: 201406

REACTIONS (3)
  - Contusion [Unknown]
  - Disorientation [Unknown]
  - Alopecia [Unknown]

NARRATIVE: CASE EVENT DATE: 2014
